FAERS Safety Report 17681445 (Version 3)
Quarter: 2021Q4

REPORT INFORMATION
  Report Type: Report from Study
  Country: CA (occurrence: CA)
  Receive Date: 20200417
  Receipt Date: 20211022
  Transmission Date: 20220303
  Serious: No
  Sender: FDA-Public Use
  Company Number: PHHY2017CA086113

PATIENT
  Sex: Male

DRUGS (14)
  1. COSENTYX [Suspect]
     Active Substance: SECUKINUMAB
     Indication: Psoriatic arthropathy
     Dosage: 150 MG, QW
     Route: 058
     Dates: start: 20161222
  2. COSENTYX [Suspect]
     Active Substance: SECUKINUMAB
     Indication: Psoriasis
     Dosage: 150 MG, QW
     Route: 058
     Dates: start: 20161229
  3. COSENTYX [Suspect]
     Active Substance: SECUKINUMAB
     Dosage: 150 MG, QMO
     Route: 058
     Dates: start: 20170105
  4. COSENTYX [Suspect]
     Active Substance: SECUKINUMAB
     Dosage: 300 MG, QMO
     Route: 058
  5. COSENTYX [Suspect]
     Active Substance: SECUKINUMAB
     Dosage: 450 MG, QMO
     Route: 058
  6. COSENTYX [Suspect]
     Active Substance: SECUKINUMAB
     Dosage: 450 MG, QMO
     Route: 058
     Dates: start: 20180411, end: 20181120
  7. COSENTYX [Suspect]
     Active Substance: SECUKINUMAB
     Dosage: 450 MG, QMO
     Route: 058
     Dates: start: 202002
  8. COSENTYX [Suspect]
     Active Substance: SECUKINUMAB
     Dosage: 450 MG, QMO
     Route: 058
     Dates: start: 20200408
  9. STELARA [Concomitant]
     Active Substance: USTEKINUMAB
     Indication: Psoriasis
     Dosage: UNK
     Route: 058
     Dates: start: 201609, end: 201612
  10. DICLOFENAC [Concomitant]
     Active Substance: DICLOFENAC
     Indication: Psoriatic arthropathy
     Dosage: UNK
     Route: 048
     Dates: start: 20080715
  11. SULFASALAZINE [Concomitant]
     Active Substance: SULFASALAZINE
     Indication: Psoriatic arthropathy
     Dosage: 500 MG, BID
     Route: 048
     Dates: start: 20080426
  12. VIMOVO [Concomitant]
     Active Substance: ESOMEPRAZOLE MAGNESIUM\NAPROXEN
     Indication: Psoriatic arthropathy
     Dosage: 1 DF, BID
     Route: 048
     Dates: start: 20130216
  13. ADVIL [Concomitant]
     Active Substance: IBUPROFEN
     Indication: Arthropathy
     Route: 065
  14. IBUPROFEN\METHOCARBAMOL [Concomitant]
     Active Substance: IBUPROFEN\METHOCARBAMOL
     Indication: Arthropathy
     Route: 065

REACTIONS (5)
  - Psoriasis [Unknown]
  - Peripheral swelling [Unknown]
  - Joint swelling [Unknown]
  - Inappropriate schedule of product administration [Unknown]
  - Extra dose administered [Unknown]
